FAERS Safety Report 9397439 (Version 3)
Quarter: 2013Q4

REPORT INFORMATION
  Report Type: Spontaneous
  Country: JP (occurrence: JP)
  Receive Date: 20130712
  Receipt Date: 20131031
  Transmission Date: 20140711
  Serious: Yes (Other)
  Sender: FDA-Public Use
  Company Number: JP-JNJFOC-20130703036

PATIENT
  Age: 48 Year
  Sex: Female

DRUGS (4)
  1. ORTHO-NOVUM 1/35-21 [Suspect]
     Indication: MENORRHAGIA
     Route: 048
  2. ORTHO-NOVUM 1/35-21 [Suspect]
     Indication: MENORRHAGIA
     Route: 048
  3. ORTHO-NOVUM 1/35-21 [Suspect]
     Indication: DYSMENORRHOEA
     Route: 048
  4. ORTHO-NOVUM 1/35-21 [Suspect]
     Indication: DYSMENORRHOEA
     Route: 048

REACTIONS (1)
  - Cerebral infarction [Unknown]
